FAERS Safety Report 8843664 (Version 2)
Quarter: 2015Q2

REPORT INFORMATION
  Report Type: Report from Study
  Country: US (occurrence: US)
  Receive Date: 20121016
  Receipt Date: 20150420
  Transmission Date: 20150821
  Serious: Yes (Hospitalization)
  Sender: FDA-Public Use
  Company Number: US-ROCHE-1120023

PATIENT
  Sex: Female
  Weight: 33.6 kg

DRUGS (10)
  1. EPOGEN [Concomitant]
     Active Substance: ERYTHROPOIETIN
  2. NUTROPIN AQ [Suspect]
     Active Substance: SOMATROPIN
     Indication: CHRONIC KIDNEY DISEASE
     Route: 058
  3. NUTROPIN AQ [Suspect]
     Active Substance: SOMATROPIN
     Indication: GROWTH HORMONE DEFICIENCY
  4. NIFEDIPINE. [Concomitant]
     Active Substance: NIFEDIPINE
  5. HECTOROL [Concomitant]
     Active Substance: DOXERCALCIFEROL
  6. NUTROPIN AQ [Suspect]
     Active Substance: SOMATROPIN
     Indication: BODY HEIGHT BELOW NORMAL
     Route: 058
  7. TUMS [Concomitant]
     Active Substance: CALCIUM CARBONATE
  8. ZYPREXA [Concomitant]
     Active Substance: OLANZAPINE
  9. NUTROPIN AQ [Suspect]
     Active Substance: SOMATROPIN
     Indication: AZOTAEMIA
     Route: 058
  10. VENOFER [Concomitant]
     Active Substance: IRON SUCROSE

REACTIONS (2)
  - Growth retardation [Unknown]
  - Malaise [Unknown]
